FAERS Safety Report 7130610-2 (Version None)
Quarter: 2010Q4

REPORT INFORMATION
  Report Type: 
  Country: None (occurrence: None)
  Receive Date: 20101201
  Receipt Date: 20101119
  Transmission Date: 20110411
  Serious: Yes (Death, Other)
  Sender: FDA-Public Use
  Company Number: US-AMGEN-QUU419537

PATIENT

DRUGS (2)
  1. NPLATE [Suspect]
     Indication: IDIOPATHIC THROMBOCYTOPENIC PURPURA
     Dosage: 250 A?G, UNK
     Dates: start: 20090521, end: 20100318
  2. NPLATE [Suspect]
     Dates: start: 20090521, end: 20100318

REACTIONS (2)
  - DEATH [None]
  - DRUG INEFFECTIVE [None]
